FAERS Safety Report 5223855-X (Version None)
Quarter: 2007Q1

REPORT INFORMATION
  Report Type: 
  Country: None (occurrence: None)
  Receive Date: 20070130
  Receipt Date: 20070124
  Transmission Date: 20070707
  Serious: No
  Sender: FDA-Public Use
  Company Number: PHEH2006US13386

PATIENT
  Age: 64 Year
  Sex: Female

DRUGS (5)
  1. MIACALCIN [Suspect]
     Indication: OSTEOPOROSIS
     Dosage: 200 IU, QD
     Dates: start: 20010101
  2. CHONDROITIN W/GLUCOSAMINE [Concomitant]
     Indication: ARTHRITIS
  3. ZYRTEC [Concomitant]
  4. VITAMINS [Concomitant]
  5. PREMARIN [Concomitant]

REACTIONS (1)
  - PAIN IN JAW [None]
